FAERS Safety Report 21230799 (Version 2)
Quarter: 2022Q3

REPORT INFORMATION
  Report Type: Report from Study
  Country: AR (occurrence: AR)
  Receive Date: 20220819
  Receipt Date: 20220920
  Transmission Date: 20221027
  Serious: Yes (Hospitalization)
  Sender: FDA-Public Use
  Company Number: AR-BRISTOL-MYERS SQUIBB COMPANY-2022-069008

PATIENT
  Age: 34 Year
  Sex: Female

DRUGS (2)
  1. ELIQUIS [Suspect]
     Active Substance: APIXABAN
     Indication: Deep vein thrombosis
     Route: 048
     Dates: start: 20220201, end: 20220505
  2. ELIQUIS [Suspect]
     Active Substance: APIXABAN
     Dosage: SECOND REGIMEN SINCE 05-MAY-2022 AT 5 MG IN THE MORNING AND 2.5 MG IN THE AFTERNOON
     Route: 048
     Dates: start: 20220505, end: 20220605

REACTIONS (3)
  - Heavy menstrual bleeding [Recovered/Resolved]
  - Varicocele [Unknown]
  - Intentional product use issue [Unknown]

NARRATIVE: CASE EVENT DATE: 20220101
